FAERS Safety Report 17557522 (Version 1)
Quarter: 2020Q1

REPORT INFORMATION
  Report Type: Spontaneous
  Country: US (occurrence: US)
  Receive Date: 20200318
  Receipt Date: 20200318
  Transmission Date: 20200409
  Serious: No
  Sender: FDA-Public Use
  Company Number: US-FAGRON STERILE SERVICES-2081756

PATIENT

DRUGS (1)
  1. TROPICAMIDE 1% CYCLOPENTOLATE 1% PHENYLEPHRINE 2.5% OPTHALMIC SOLUTION [Suspect]
     Active Substance: CYCLOPENTOLATE\PHENYLEPHRINE\TROPICAMIDE

REACTIONS (1)
  - Drug ineffective [None]
